FAERS Safety Report 6405771-0 (Version None)
Quarter: 2009Q4

REPORT INFORMATION
  Report Type: 
  Country: None (occurrence: None)
  Receive Date: 20091014
  Receipt Date: 20090930
  Transmission Date: 20100525
  Serious: Yes (Other)
  Sender: FDA-Public Use
  Company Number: 230863K09USA

PATIENT
  Age: 26 Year
  Sex: Female

DRUGS (4)
  1. REBIF [Suspect]
     Indication: MULTIPLE SCLEROSIS
     Dosage: 44 MCG, 3 IN  1 WEEKS, SUBCUTANEOUS
     Route: 058
     Dates: start: 20080730
  2. VALIUM [Concomitant]
  3. AMBIEN [Concomitant]
  4. MELATONIN (MELATONIN) [Concomitant]

REACTIONS (4)
  - FACIAL PAIN [None]
  - KIDNEY ENLARGEMENT [None]
  - MUSCULOSKELETAL PAIN [None]
  - RENAL PAIN [None]
